FAERS Safety Report 11067464 (Version 1)
Quarter: 2015Q2

REPORT INFORMATION
  Report Type: Spontaneous
  Country: FR (occurrence: FR)
  Receive Date: 20150427
  Receipt Date: 20150427
  Transmission Date: 20150821
  Serious: Yes (Death, Hospitalization)
  Sender: FDA-Public Use
  Company Number: PHHY2015FR047057

PATIENT

DRUGS (1)
  1. AMIODARONE [Suspect]
     Active Substance: AMIODARONE
     Indication: PRODUCT USED FOR UNKNOWN INDICATION
     Route: 065

REACTIONS (9)
  - Cough [None]
  - Septic shock [Fatal]
  - Haemoptysis [None]
  - Pyrexia [None]
  - Chest pain [None]
  - Productive cough [None]
  - Pulmonary toxicity [Unknown]
  - Asthenia [None]
  - Dyspnoea [Fatal]
